FAERS Safety Report 6943042-4 (Version None)
Quarter: 2010Q3

REPORT INFORMATION
  Report Type: 
  Country: None (occurrence: None)
  Receive Date: 20100826
  Receipt Date: 20100818
  Transmission Date: 20110219
  Serious: Yes (Hospitalization)
  Sender: FDA-Public Use
  Company Number: JP-JNJFOC-20100608549

PATIENT
  Sex: Female
  Weight: 41 kg

DRUGS (11)
  1. REMICADE [Suspect]
     Indication: RHEUMATOID ARTHRITIS
     Dosage: 6TH THROUGH 19TH INFUSIONS
     Route: 042
  2. REMICADE [Suspect]
     Dosage: INFUSIONS 1 - 5
     Route: 042
  3. RHEUMATREX [Suspect]
     Indication: RHEUMATOID ARTHRITIS
     Route: 048
  4. FOLIAMIN [Concomitant]
     Route: 048
  5. CYTOTEC [Concomitant]
     Indication: PROPHYLAXIS
     Route: 048
  6. LOXONIN [Concomitant]
     Indication: RHEUMATOID ARTHRITIS
     Route: 048
  7. MUCOSTA [Concomitant]
     Indication: PROPHYLAXIS
     Route: 048
  8. PROPACIL [Concomitant]
     Indication: HYPOTHYROIDISM
     Route: 048
  9. SALIGREN [Concomitant]
     Indication: SJOGREN'S SYNDROME
     Route: 048
  10. OPALMON [Concomitant]
     Indication: SPINAL COLUMN STENOSIS
     Route: 048
  11. BONOTEO [Concomitant]
     Indication: OSTEOPOROSIS
     Route: 048

REACTIONS (1)
  - LYMPHOPROLIFERATIVE DISORDER [None]
